FAERS Safety Report 24894678 (Version 1)
Quarter: 2025Q1

REPORT INFORMATION
  Report Type: Spontaneous
  Country: US (occurrence: None)
  Receive Date: 20250127
  Receipt Date: 20250127
  Transmission Date: 20250408
  Serious: Yes (Disabling)
  Sender: FDA-CTU
  Company Number: None

PATIENT
  Age: 73 Year
  Sex: Female
  Weight: 63 kg

DRUGS (11)
  1. REPATHA [Suspect]
     Active Substance: EVOLOCUMAB
     Indication: Coronary artery disease
     Route: 058
     Dates: start: 20241001, end: 20241216
  2. CELECOXIB [Concomitant]
     Active Substance: CELECOXIB
  3. ESTRADIOL TRANSDERMAL SYSTEM [Concomitant]
     Active Substance: ESTRADIOL
  4. LOSARTAN [Concomitant]
     Active Substance: LOSARTAN
  5. PROGESTERONE [Concomitant]
     Active Substance: PROGESTERONE
  6. XANAX [Concomitant]
     Active Substance: ALPRAZOLAM
  7. TYLENOL [Concomitant]
     Active Substance: ACETAMINOPHEN
  8. MAGNESIUM GLUCONATE [Concomitant]
     Active Substance: MAGNESIUM GLUCONATE
  9. VITAMIN D3 [Concomitant]
     Active Substance: CHOLECALCIFEROL
  10. nutrofol [Concomitant]
  11. neuriva [Concomitant]

REACTIONS (9)
  - Influenza like illness [None]
  - Arthralgia [None]
  - Muscular weakness [None]
  - Middle insomnia [None]
  - Pain in extremity [None]
  - Arthralgia [None]
  - Burning sensation [None]
  - Fatigue [None]
  - Back pain [None]

NARRATIVE: CASE EVENT DATE: 20241118
